FAERS Safety Report 9402711 (Version 2)
Quarter: 2013Q3

REPORT INFORMATION
  Report Type: Spontaneous
  Country: US (occurrence: US)
  Receive Date: 20130716
  Receipt Date: 20130811
  Transmission Date: 20140515
  Serious: No
  Sender: FDA-Public Use
  Company Number: US-TEVA-419207USA

PATIENT
  Age: 20 Year
  Sex: Female
  Weight: 65.83 kg

DRUGS (1)
  1. PARAGARD 380A [Suspect]
     Indication: CONTRACEPTION
     Route: 015
     Dates: start: 20130607, end: 20130702

REACTIONS (3)
  - Metrorrhagia [Unknown]
  - Pain [Unknown]
  - Device expulsion [Recovered/Resolved]
